FAERS Safety Report 7384869-7 (Version None)
Quarter: 2011Q1

REPORT INFORMATION
  Report Type: 
  Country: None (occurrence: None)
  Receive Date: 20110330
  Receipt Date: 20110324
  Transmission Date: 20110831
  Serious: Yes (Other)
  Sender: FDA-Public Use
  Company Number: US-PFIZER INC-2010103277

PATIENT
  Sex: Male

DRUGS (1)
  1. SUTENT [Suspect]
     Indication: METASTATIC RENAL CELL CARCINOMA
     Dosage: 50 MG, 1X/DAY, 28 DAYS EVERY 42 DAYS, 4 WEEKS ON AND 2 OFF
     Dates: start: 20100806, end: 20100901

REACTIONS (2)
  - BLOOD PRESSURE INCREASED [None]
  - TOOTH INFECTION [None]
